FAERS Safety Report 7198872-3 (Version None)
Quarter: 2010Q4

REPORT INFORMATION
  Report Type: 
  Country: None (occurrence: None)
  Receive Date: 20101227
  Receipt Date: 20101220
  Transmission Date: 20110411
  Serious: Yes (Hospitalization)
  Sender: FDA-Public Use
  Company Number: CH-PFIZER INC-2010178374

PATIENT
  Age: 25 Year
  Sex: Female

DRUGS (5)
  1. PANTOZOL [Suspect]
     Indication: VOMITING
     Dosage: 1 DF, 1X/DAY
     Route: 048
     Dates: start: 20101129, end: 20101129
  2. DAFALGAN [Suspect]
     Dosage: 5 TO 8 GRAMS DAILY
     Route: 048
     Dates: start: 20101125, end: 20101127
  3. FLUIMUCIL [Suspect]
     Dosage: 8550 MG, 1X/DAY
     Route: 040
     Dates: start: 20101130, end: 20101130
  4. DOMPERIDONE [Concomitant]
     Indication: VOMITING
     Dosage: 3 DOSAGE FORMS
     Route: 048
     Dates: start: 20101129, end: 20101129
  5. BUSCOPAN [Concomitant]
     Dosage: 4 DOSAGE FORMS
     Route: 048
     Dates: start: 20101125, end: 20101127

REACTIONS (4)
  - COUGH [None]
  - HEPATIC ENZYME INCREASED [None]
  - HYPOTENSION [None]
  - PRURITUS [None]
